FAERS Safety Report 7400125-2 (Version None)
Quarter: 2011Q2

REPORT INFORMATION
  Report Type: 
  Country: None (occurrence: None)
  Receive Date: 20110407
  Receipt Date: 20100305
  Transmission Date: 20111010
  Serious: No
  Sender: FDA-Public Use
  Company Number: US-KINGPHARMUSA00001-K201000272

PATIENT
  Age: 52 Year
  Sex: Male
  Weight: 88.435 kg

DRUGS (4)
  1. SKELAXIN [Suspect]
     Indication: MUSCLE TIGHTNESS
     Dosage: 800 MG, TWICE
     Route: 048
     Dates: start: 20100303, end: 20100304
  2. OXYCODONE HCL [Concomitant]
     Indication: PAIN MANAGEMENT
     Dosage: UNK, Q4-6 HOURS, PRN
  3. DIAZEPAM [Concomitant]
     Indication: PAIN MANAGEMENT
     Dosage: UNK, Q4-6 HOURS, PRN
  4. EPIDURAL INJECTIONS [Concomitant]
     Indication: PAIN MANAGEMENT

REACTIONS (2)
  - URTICARIA [None]
  - PRURITUS [None]
